FAERS Safety Report 23466232 (Version 3)
Quarter: 2024Q1

REPORT INFORMATION
  Report Type: Spontaneous
  Country: US (occurrence: US)
  Receive Date: 20240201
  Receipt Date: 20240312
  Transmission Date: 20240410
  Serious: Yes (Other)
  Sender: FDA-Public Use
  Company Number: US-SMITH AND NEPHEW, INC-2024SMT00015

PATIENT
  Age: 54 Year
  Sex: Female

DRUGS (4)
  1. COLLAGENASE SANTYL [Suspect]
     Active Substance: COLLAGENASE CLOSTRIDIUM HISTOLYTICUM
     Indication: Wound complication
     Dosage: APPLIED ON THE FRONT OF HER LEG; BOTTOM LEFT OF LEG
     Route: 061
     Dates: start: 20230208, end: 202310
  2. COLLAGENASE SANTYL [Suspect]
     Active Substance: COLLAGENASE CLOSTRIDIUM HISTOLYTICUM
     Dosage: UNK
     Dates: start: 202401
  3. LASIX [Concomitant]
     Active Substance: FUROSEMIDE
  4. POTASSIUM [Concomitant]
     Active Substance: POTASSIUM

REACTIONS (5)
  - Skin graft failure [Not Recovered/Not Resolved]
  - Wound complication [Not Recovered/Not Resolved]
  - Neuralgia [Not Recovered/Not Resolved]
  - Wound infection [Not Recovered/Not Resolved]
  - Product use issue [Not Recovered/Not Resolved]

NARRATIVE: CASE EVENT DATE: 20231001
